FAERS Safety Report 8474314-2 (Version None)
Quarter: 2012Q2

REPORT INFORMATION
  Report Type: 
  Country: None (occurrence: None)
  Receive Date: 20120628
  Receipt Date: 20120620
  Transmission Date: 20120825
  Serious: Yes (Other)
  Sender: FDA-Public Use
  Company Number: US-US-EMD SERONO, INC.-7094374

PATIENT
  Sex: Female

DRUGS (4)
  1. ASPIRIN [Concomitant]
     Indication: PREMEDICATION
  2. REBIF [Suspect]
     Route: 058
  3. REBIF [Suspect]
     Indication: MULTIPLE SCLEROSIS
     Route: 058
     Dates: start: 20091114
  4. NAPROXEN (ALEVE) [Concomitant]
     Indication: PREMEDICATION

REACTIONS (5)
  - SPINAL COLUMN STENOSIS [None]
  - WHITE BLOOD CELL COUNT DECREASED [None]
  - FATIGUE [None]
  - MOUTH ULCERATION [None]
  - INJECTION SITE ERYTHEMA [None]
